FAERS Safety Report 8822461 (Version 1)
Quarter: 2012Q4

REPORT INFORMATION
  Report Type: 
  Country: US (occurrence: US)
  Receive Date: 20121003
  Receipt Date: 20121003
  Transmission Date: 20130627
  Serious: Yes (Other)
  Sender: FDA-Public Use
  Company Number: US-ASTELLAS-2012US008177

PATIENT
  Age: 75 Year
  Sex: Male

DRUGS (2)
  1. VESICARE [Suspect]
     Indication: POLLAKIURIA
     Dosage: 5 mg, UID/QD
     Route: 048
     Dates: start: 20120920
  2. VESICARE [Suspect]
     Indication: MICTURITION URGENCY

REACTIONS (5)
  - Drug ineffective [Unknown]
  - Dyspnoea [Unknown]
  - Lip swelling [Unknown]
  - Lip discolouration [Unknown]
  - Urine flow decreased [Unknown]
